FAERS Safety Report 14196710 (Version 1)
Quarter: 2017Q4

REPORT INFORMATION
  Report Type: Spontaneous
  Country: US (occurrence: US)
  Receive Date: 20171116
  Receipt Date: 20171116
  Transmission Date: 20180321
  Serious: No
  Sender: FDA-Public Use
  Company Number: US-GLAXOSMITHKLINE-US2017173203

PATIENT
  Age: 55 Year
  Sex: Male

DRUGS (1)
  1. ABREVA [Suspect]
     Active Substance: DOCOSANOL
     Indication: ORAL HERPES
     Dosage: 2 TIMES IN THE LAST HOUR
     Dates: start: 20171109, end: 20171109

REACTIONS (3)
  - Oral herpes [Unknown]
  - Condition aggravated [Unknown]
  - Medication error [Unknown]

NARRATIVE: CASE EVENT DATE: 20171109
